FAERS Safety Report 24985470 (Version 1)
Quarter: 2025Q1

REPORT INFORMATION
  Report Type: Spontaneous
  Country: GB (occurrence: GB)
  Receive Date: 20250219
  Receipt Date: 20250219
  Transmission Date: 20250409
  Serious: Yes (Other)
  Sender: NX DEVELOPMENT CORPORATION
  Company Number: GB-NXDC-2025GLE00009

PATIENT
  Age: 5 Year
  Sex: Female

DRUGS (1)
  1. AMINOLEVULINIC ACID HYDROCHLORIDE [Suspect]
     Active Substance: AMINOLEVULINIC ACID HYDROCHLORIDE
     Indication: Photodynamic diagnostic procedure

REACTIONS (2)
  - Anaphylactic reaction [Unknown]
  - Off label use [Unknown]
